FAERS Safety Report 8059519-7 (Version None)
Quarter: 2012Q1

REPORT INFORMATION
  Report Type: 
  Country: None (occurrence: None)
  Receive Date: 20120113
  Receipt Date: 20111228
  Transmission Date: 20120608
  Serious: Yes (Other)
  Sender: FDA-Public Use
  Company Number: 2011-5282

PATIENT
  Age: 68 Year
  Sex: 0

DRUGS (1)
  1. SOMATULINE DEPOT [Suspect]
     Indication: SHORT-BOWEL SYNDROME
     Dosage: 90 MG (90 MG, 1 IN 1 M),
     Dates: start: 20111117

REACTIONS (2)
  - RASH GENERALISED [None]
  - RASH PRURITIC [None]
